FAERS Safety Report 6680838-0 (Version None)
Quarter: 2010Q2

REPORT INFORMATION
  Report Type: 
  Country: None (occurrence: None)
  Receive Date: 20100413
  Receipt Date: 20100413
  Transmission Date: 20101027
  Serious: Yes (Life-Threatening, Other)
  Sender: FDA-Public Use
  Company Number: None

PATIENT
  Age: 69 Year
  Sex: Male
  Weight: 99.7913 kg

DRUGS (1)
  1. NIASPAN [Suspect]
     Indication: BLOOD CHOLESTEROL
     Dosage: ONE TABLET QHS PO
     Route: 048
     Dates: start: 20100101, end: 20100410

REACTIONS (5)
  - FLUSHING [None]
  - HAEMORRHAGE [None]
  - PRURITUS [None]
  - SCRATCH [None]
  - TABLET ISSUE [None]
